FAERS Safety Report 4405058-1 (Version None)
Quarter: 2004Q3

REPORT INFORMATION
  Report Type: 
  Country: None (occurrence: None)
  Receive Date: 20040716
  Receipt Date: 20040705
  Transmission Date: 20050211
  Serious: Yes (Disabling)
  Sender: FDA-Public Use
  Company Number: S04-FRA-02981-01

PATIENT
  Age: 92 Year
  Sex: Female

DRUGS (7)
  1. MEMANTINE HCL [Suspect]
     Indication: DEMENTIA
     Dosage: 10 MG QD PO
     Route: 048
     Dates: start: 20031201, end: 20040302
  2. MEMANTINE HCL [Suspect]
     Indication: DEMENTIA
     Dosage: 5 MG QD PO
     Route: 048
     Dates: start: 20030916, end: 20031201
  3. DIGITALINE (DIGITOXIN) [Concomitant]
  4. LSILIX (FUROSEMIDE) [Concomitant]
  5. LYPANTHYL (FENOFIBRATE) (FENOFIBRATE) [Concomitant]
  6. ASPIRIN [Concomitant]
  7. ALLOPURINOL [Concomitant]

REACTIONS (9)
  - AGGRESSION [None]
  - AGITATION [None]
  - GASTRIC ULCER [None]
  - HALLUCINATION, VISUAL [None]
  - HIATUS HERNIA [None]
  - MIDDLE INSOMNIA [None]
  - OESOPHAGITIS [None]
  - SOMNOLENCE [None]
  - SPEECH DISORDER [None]
